FAERS Safety Report 21666596 (Version 2)
Quarter: 2022Q4

REPORT INFORMATION
  Report Type: Report from Study
  Country: US (occurrence: US)
  Receive Date: 20221201
  Receipt Date: 20221227
  Transmission Date: 20230113
  Serious: Yes (Hospitalization, Disabling)
  Sender: FDA-Public Use
  Company Number: US-SANOFI-01383069

PATIENT
  Age: 74 Year
  Sex: Male

DRUGS (4)
  1. DRONEDARONE [Suspect]
     Active Substance: DRONEDARONE
     Indication: Arrhythmia
     Dosage: 400MG,2X DAILY
     Route: 065
     Dates: start: 20220509
  2. AMIODARONE [Concomitant]
     Active Substance: AMIODARONE
     Indication: Dyspnoea
     Dosage: 200MG,1/DAY
     Dates: start: 202110, end: 20220408
  3. METOPROLOL SUCCINATE [Concomitant]
     Active Substance: METOPROLOL SUCCINATE
     Indication: Arrhythmia
     Dosage: 25 MG, QD
     Dates: start: 202102, end: 20220708
  4. BENAZEPRIL [Concomitant]
     Active Substance: BENAZEPRIL HYDROCHLORIDE
     Indication: Blood pressure measurement
     Dates: end: 20220708

REACTIONS (3)
  - Localised infection [Unknown]
  - Physical disability [Unknown]
  - Dyspnoea [Unknown]
